FAERS Safety Report 7312468-1 (Version None)
Quarter: 2011Q1

REPORT INFORMATION
  Report Type: 
  Country: None (occurrence: None)
  Receive Date: 20110224
  Receipt Date: 20110215
  Transmission Date: 20110831
  Serious: Yes (Other)
  Sender: FDA-Public Use
  Company Number: CH-ASTRAZENECA-2011SE09014

PATIENT
  Age: 46 Year
  Sex: Male

DRUGS (8)
  1. SEROQUEL [Suspect]
     Route: 048
     Dates: end: 20101201
  2. TOPAMAX [Concomitant]
  3. DIPIPERON [Concomitant]
  4. TRANXILIUM [Concomitant]
  5. VI-DE 3 [Concomitant]
  6. PANTOZOL [Concomitant]
  7. FLUCTINE [Concomitant]
     Route: 048
  8. CALCIMAGON D3 [Concomitant]

REACTIONS (1)
  - NEUTROPENIA [None]
